FAERS Safety Report 6524660-4 (Version None)
Quarter: 2010Q1

REPORT INFORMATION
  Report Type: 
  Country: None (occurrence: None)
  Receive Date: 20100104
  Receipt Date: 20091221
  Transmission Date: 20100710
  Serious: Yes (Hospitalization)
  Sender: FDA-Public Use
  Company Number: DK-AMGEN-US301297

PATIENT
  Sex: Female

DRUGS (3)
  1. ENBREL [Suspect]
     Indication: RHEUMATOID ARTHRITIS
     Route: 058
     Dates: start: 20050112
  2. ENBREL [Suspect]
     Route: 058
  3. PREDNISOLONE [Concomitant]
     Dosage: UNKNOWN
     Dates: start: 20050704, end: 20080515

REACTIONS (1)
  - MYELODYSPLASTIC SYNDROME [None]
